FAERS Safety Report 6087629-2 (Version None)
Quarter: 2009Q1

REPORT INFORMATION
  Report Type: 
  Country: None (occurrence: None)
  Receive Date: 20090223
  Receipt Date: 20090213
  Transmission Date: 20090719
  Serious: Yes (Other)
  Sender: FDA-Public Use
  Company Number: US-ABBOTT-09P-163-0557289-00

PATIENT
  Sex: Male
  Weight: 81.72 kg

DRUGS (18)
  1. NIASPAN [Suspect]
     Indication: BLOOD CHOLESTEROL
     Dosage: 1 IN 1 D AT BEDTIME
     Route: 048
     Dates: start: 20080212
  2. NIASPAN [Suspect]
     Indication: MYOCARDIAL INFARCTION
  3. NIASPAN [Suspect]
     Indication: PROPHYLAXIS
  4. TRILIPIX 135MG [Suspect]
     Indication: BLOOD CHOLESTEROL
     Dosage: 1 IN 1 D AT BEDTIME
     Route: 048
     Dates: start: 20090212
  5. TRILIPIX 135MG [Suspect]
     Indication: MYOCARDIAL INFARCTION
  6. TRILIPIX 135MG [Suspect]
     Indication: PROPHYLAXIS
  7. TRILIPIX 135MG [Suspect]
     Indication: HIGH DENSITY LIPOPROTEIN DECREASED
  8. SIMVASTATIN [Suspect]
     Indication: BLOOD CHOLESTEROL
     Route: 048
     Dates: start: 20070101, end: 20081201
  9. SIMVASTATIN [Suspect]
     Indication: MYOCARDIAL INFARCTION
  10. SIMVASTATIN [Suspect]
     Indication: PROPHYLAXIS
  11. PLAVIX [Concomitant]
     Indication: DRUG USE FOR UNKNOWN INDICATION
     Route: 048
  12. RAMIPRIL [Concomitant]
     Indication: DRUG USE FOR UNKNOWN INDICATION
     Route: 048
  13. FOLIC ACID [Concomitant]
     Indication: DRUG USE FOR UNKNOWN INDICATION
     Route: 048
  14. LOVAZA [Concomitant]
     Indication: DRUG USE FOR UNKNOWN INDICATION
     Route: 048
  15. METOPROLOL [Concomitant]
     Indication: DRUG USE FOR UNKNOWN INDICATION
     Route: 048
  16. ASPIRIN [Concomitant]
     Indication: DRUG USE FOR UNKNOWN INDICATION
     Route: 048
  17. GABAPENTIN [Concomitant]
     Indication: NEURALGIA
     Route: 048
  18. ACTOPLUS MET [Concomitant]
     Indication: DIABETES MELLITUS
     Dosage: 15/850 MG PILL
     Route: 048

REACTIONS (8)
  - BLOOD CREATINE PHOSPHOKINASE ABNORMAL [None]
  - CONTUSION [None]
  - GAIT DISTURBANCE [None]
  - JOINT INSTABILITY [None]
  - LOWER LIMB FRACTURE [None]
  - MUSCLE ATROPHY [None]
  - OSTEOMYELITIS [None]
  - WEIGHT DECREASED [None]
